FAERS Safety Report 9812806 (Version 3)
Quarter: 2014Q1

REPORT INFORMATION
  Report Type: Spontaneous
  Country: US (occurrence: US)
  Receive Date: 20140113
  Receipt Date: 20140115
  Transmission Date: 20141002
  Serious: Yes (Hospitalization, Other)
  Sender: FDA-Public Use
  Company Number: US-BEH-2013037948

PATIENT
  Age: 33 Year
  Sex: Male

DRUGS (1)
  1. PRIVIGEN [Suspect]
     Indication: SELECTIVE IGG SUBCLASS DEFICIENCY

REACTIONS (9)
  - Brain oedema [Unknown]
  - Hypersensitivity [Unknown]
  - Dysarthria [Unknown]
  - Dizziness [Unknown]
  - Nausea [Unknown]
  - Amnesia [Unknown]
  - Asthenia [Unknown]
  - Angioedema [Unknown]
  - Rash [Unknown]
